FAERS Safety Report 4996151-3 (Version None)
Quarter: 2006Q2

REPORT INFORMATION
  Report Type: 
  Country: None (occurrence: None)
  Receive Date: 20060504
  Receipt Date: 20060424
  Transmission Date: 20061013
  Serious: Yes (Hospitalization)
  Sender: FDA-Public Use
  Company Number: 2005076844

PATIENT
  Age: 35 Year
  Sex: Male

DRUGS (1)
  1. GENOTROPIN [Suspect]
     Dosage: 0.6 MG (0.6 MG, 6 INJECTIONS EVERY WEEK), UNKNOWN
     Route: 065

REACTIONS (2)
  - COLONIC PERFORATION POSTOPERATIVE [None]
  - MALAISE [None]
